FAERS Safety Report 4693028-8 (Version None)
Quarter: 2005Q2

REPORT INFORMATION
  Report Type: 
  Country: None (occurrence: None)
  Receive Date: 20050616
  Receipt Date: 20050603
  Transmission Date: 20051028
  Serious: Yes (Hospitalization, Other)
  Sender: FDA-Public Use
  Company Number: 2005084039

PATIENT
  Age: 42 Year
  Sex: Male
  Weight: 55.3388 kg

DRUGS (5)
  1. LISTERINE (MENTHOL, METHYL SALICYLATE, EUCALYPTOL, THYMOL) [Suspect]
     Indication: INTENTIONAL MISUSE
     Dosage: 2 BOTTLES QD, ORAL
     Route: 048
     Dates: start: 20050601
  2. LISTERINE (MENTHOL, METHYL SALICYLATE, EUCALYPTOL, THYMOL) [Suspect]
     Indication: OVERDOSE
     Dosage: 2 BOTTLES QD, ORAL
     Route: 048
     Dates: start: 20050601
  3. SALBUTAMOL (SALBUTAMOL) [Concomitant]
  4. CHLORDIAZEPOXIDE (CHLORDIAEPOXIDE) [Concomitant]
  5. MULTIVITAMINS (ASCORBIC ACID, ERGOCALCIFERFOL, FOLIC ACID, NICOTINAMID [Concomitant]

REACTIONS (4)
  - BLOOD ALCOHOL INCREASED [None]
  - CHEST PAIN [None]
  - DEHYDRATION [None]
  - INTENTIONAL MISUSE [None]
